FAERS Safety Report 5290554-8 (Version None)
Quarter: 2007Q2

REPORT INFORMATION
  Report Type: 
  Country: None (occurrence: None)
  Receive Date: 20070409
  Receipt Date: 20070326
  Transmission Date: 20071010
  Serious: Yes (Hospitalization, Other)
  Sender: FDA-Public Use
  Company Number: PHBS2007BR05472

PATIENT
  Age: 81 Year
  Sex: Female
  Weight: 60 kg

DRUGS (4)
  1. INDERAL [Concomitant]
     Indication: BLOOD PRESSURE
     Dosage: 2 TABLET/DAY
     Route: 048
  2. SERTRALINE [Concomitant]
     Indication: DEPRESSION
     Dosage: 1 TABLET/DAY
     Route: 048
  3. AMILORIDE HYDROCHLORIDE [Concomitant]
     Dosage: 1 TABLET/DAY
     Route: 048
  4. SLOW-K [Suspect]
     Indication: BLOOD POTASSIUM DECREASED
     Dosage: 600 MG/DAY
     Route: 048

REACTIONS (8)
  - ASTHENIA [None]
  - BLOOD POTASSIUM DECREASED [None]
  - EMOTIONAL DISORDER [None]
  - MUSCLE SPASMS [None]
  - PRURITUS [None]
  - RASH [None]
  - SURGERY [None]
  - THERAPY RESPONDER [None]
